FAERS Safety Report 10978998 (Version 1)
Quarter: 2015Q2

REPORT INFORMATION
  Report Type: Spontaneous
  Country: US (occurrence: US)
  Receive Date: 20150402
  Receipt Date: 20150402
  Transmission Date: 20150821
  Serious: Yes (Other)
  Sender: FDA-Public Use
  Company Number: US-SUCAMPO AG-SPI201500305

PATIENT
  Sex: Female
  Weight: 85 kg

DRUGS (6)
  1. OTHER UNKNOWN MEDICATION [Concomitant]
     Dosage: UNK
  2. AMITIZA [Suspect]
     Active Substance: LUBIPROSTONE
     Indication: CONSTIPATION
     Dosage: 24 MCG, BID
     Route: 048
  3. UNKNOWN [Concomitant]
     Active Substance: UNSPECIFIED INGREDIENT
     Indication: PAIN
     Dosage: UNK
  4. DEXILANT [Suspect]
     Active Substance: DEXLANSOPRAZOLE
     Indication: GASTRITIS
  5. DEXILANT [Suspect]
     Active Substance: DEXLANSOPRAZOLE
     Indication: EROSIVE OESOPHAGITIS
     Dosage: 60 MG, QD
     Route: 048
     Dates: start: 201403
  6. UNKNOWN [Concomitant]
     Active Substance: UNSPECIFIED INGREDIENT
     Indication: PAIN
     Dosage: UNK
     Route: 062

REACTIONS (5)
  - Drug hypersensitivity [Not Recovered/Not Resolved]
  - Hiatus hernia [Unknown]
  - Abdominal distension [Not Recovered/Not Resolved]
  - Erosive oesophagitis [Unknown]
  - Gastritis [Unknown]
